FAERS Safety Report 5411223-7 (Version None)
Quarter: 2007Q3

REPORT INFORMATION
  Report Type: 
  Country: None (occurrence: None)
  Receive Date: 20070810
  Receipt Date: 20070808
  Transmission Date: 20080115
  Serious: Yes (Life-Threatening, Other)
  Sender: FDA-Public Use
  Company Number: B0481075A

PATIENT
  Age: 10 Year
  Sex: Male
  Weight: 35 kg

DRUGS (1)
  1. CEFAMEZIN [Suspect]
     Indication: PROPHYLAXIS
     Dosage: 1G PER DAY
     Route: 042
     Dates: start: 20070723, end: 20070723

REACTIONS (7)
  - ANAPHYLACTIC REACTION [None]
  - EYELID OEDEMA [None]
  - NAUSEA [None]
  - PRURITUS GENERALISED [None]
  - URTICARIA [None]
  - VOMITING [None]
  - WHEEZING [None]
